FAERS Safety Report 8953252 (Version 8)
Quarter: 2014Q2

REPORT INFORMATION
  Report Type: Spontaneous
  Country: JP (occurrence: JP)
  Receive Date: 20121206
  Receipt Date: 20140529
  Transmission Date: 20141212
  Serious: Yes (Death, Hospitalization)
  Sender: FDA-Public Use
  Company Number: JP-BAYER-2012-125229

PATIENT
  Age: 60 Year
  Sex: Male
  Weight: 42 kg

DRUGS (10)
  1. NEXAVAR [Suspect]
     Indication: HEPATOCELLULAR CARCINOMA
     Dosage: 400 MG DAILY
     Route: 048
     Dates: start: 20121120, end: 20121125
  2. NAIXAN [Concomitant]
     Indication: TUMOUR ASSOCIATED FEVER
     Dosage: DAILY DOSE 200 MG
     Route: 048
     Dates: start: 20120907, end: 20121125
  3. PARIET [Concomitant]
     Indication: PROPHYLAXIS
     Dosage: DAILY DOSE 10 MG
     Route: 048
     Dates: start: 20120907, end: 20121125
  4. DOGMATYL [Concomitant]
     Indication: DECREASED APPETITE
     Dosage: DAILY DOSE 100 MG
     Route: 048
     Dates: start: 20120907, end: 20121125
  5. PORTOLAC [Concomitant]
     Indication: AMMONIA INCREASED
     Dosage: DAILY DOSE 36 G
     Route: 048
     Dates: start: 20121119, end: 20121125
  6. BAYASPIRIN [Concomitant]
     Indication: CEREBROVASCULAR ACCIDENT PROPHYLAXIS
     Dosage: DAILY DOSE 100 MG
     Route: 048
     Dates: start: 20080612, end: 20121125
  7. PLETAAL [Concomitant]
     Indication: CEREBROVASCULAR ACCIDENT PROPHYLAXIS
     Dosage: DAILY DOSE 100 MG
     Route: 048
     Dates: start: 20080619, end: 20121125
  8. EPADEL [Concomitant]
     Indication: CEREBROVASCULAR ACCIDENT PROPHYLAXIS
     Dosage: DAILY DOSE 1800 MG
     Route: 048
     Dates: start: 20090313, end: 20121125
  9. 5-FU [Concomitant]
     Dosage: DAILY DOSE 250 MG
     Route: 013
     Dates: start: 20121029, end: 20121102
  10. RANDA [Concomitant]
     Dosage: DAILY DOSE 250 MG
     Route: 013
     Dates: start: 20121029, end: 20121029

REACTIONS (3)
  - Tumour lysis syndrome [Fatal]
  - Renal failure acute [Recovered/Resolved with Sequelae]
  - General physical health deterioration [Fatal]
